FAERS Safety Report 20844851 (Version 2)
Quarter: 2022Q3

REPORT INFORMATION
  Report Type: Spontaneous
  Country: CZ (occurrence: CZ)
  Receive Date: 20220518
  Receipt Date: 20220711
  Transmission Date: 20221027
  Serious: Yes (Hospitalization, Other)
  Sender: FDA-Public Use
  Company Number: None

PATIENT
  Age: 52 Year
  Sex: Female
  Weight: 80 kg

DRUGS (3)
  1. GENTAMICIN [Suspect]
     Active Substance: GENTAMICIN
     Indication: Urinary tract infection bacterial
     Dosage: UNK, (FROM THE FIRST DAY TILL THE FIFTH DAY - 240 MG. FROM THE SIXTH DAY TILL THE TENTH DAY - 400 MG
     Route: 065
     Dates: start: 20211118, end: 20211127
  2. BETAHISTINE [Concomitant]
     Active Substance: BETAHISTINE
     Indication: Product used for unknown indication
     Dosage: 16 MG, Q8H (1-1-1) (ROA-20053000)
     Route: 065
  3. EUTHYROX [Concomitant]
     Active Substance: LEVOTHYROXINE SODIUM
     Indication: Product used for unknown indication
     Dosage: 75 UG, Q24H (1-0-0) (ROA-20053000)
     Route: 065

REACTIONS (16)
  - Dysarthria [Recovered/Resolved with Sequelae]
  - Headache [Not Recovered/Not Resolved]
  - Peripheral sensory neuropathy [Not Recovered/Not Resolved]
  - Vestibular disorder [Unknown]
  - Cerebellar syndrome [Unknown]
  - Facial pain [Recovered/Resolved with Sequelae]
  - Dysstasia [Recovered/Resolved with Sequelae]
  - Eye pain [Recovered/Resolved with Sequelae]
  - Skin burning sensation [Recovered/Resolved with Sequelae]
  - Movement disorder [Recovered/Resolved with Sequelae]
  - Photopsia [Recovered/Resolved with Sequelae]
  - Ear pain [Recovered/Resolved with Sequelae]
  - Muscle tightness [Recovered/Resolved with Sequelae]
  - Nausea [Recovered/Resolved with Sequelae]
  - Dizziness [Not Recovered/Not Resolved]
  - Tinnitus [Recovered/Resolved with Sequelae]

NARRATIVE: CASE EVENT DATE: 20211205
